FAERS Safety Report 20349189 (Version 3)
Quarter: 2022Q1

REPORT INFORMATION
  Report Type: Other
  Country: US (occurrence: None)
  Receive Date: 20220119
  Receipt Date: 20220316
  Transmission Date: 20220423
  Serious: Yes (Hospitalization)
  Sender: FDA-Public Use
  Company Number: US-ROCHE-3001985

PATIENT
  Age: 40 Year
  Sex: Female

DRUGS (10)
  1. OCRELIZUMAB [Suspect]
     Active Substance: OCRELIZUMAB
     Indication: Multiple sclerosis
     Dosage: NEXT DOSE: 12/AUG/2020
     Route: 065
     Dates: start: 20200722
  2. OCRELIZUMAB [Suspect]
     Active Substance: OCRELIZUMAB
     Dosage: NEXT DOSE: 17/DEC/2021
     Route: 065
     Dates: start: 20210608
  3. BUPROPION HYDROCHLORIDE XL [Concomitant]
     Active Substance: BUPROPION HYDROCHLORIDE
     Dates: start: 2012
  4. ESCITALOPRAM OXALATE [Concomitant]
     Active Substance: ESCITALOPRAM OXALATE
     Dates: start: 2012
  5. ESZOPICLONE [Concomitant]
     Active Substance: ESZOPICLONE
     Dates: start: 2016
  6. LIFITEGRAST [Concomitant]
     Active Substance: LIFITEGRAST
  7. MELATONIN [Concomitant]
     Active Substance: MELATONIN
  8. OMEPRAZOLE [Concomitant]
     Active Substance: OMEPRAZOLE
  9. PROGESTERONE [Concomitant]
     Active Substance: PROGESTERONE
  10. ASPIRIN [Concomitant]
     Active Substance: ASPIRIN

REACTIONS (1)
  - COVID-19 [Recovered/Resolved]

NARRATIVE: CASE EVENT DATE: 20211226
